FAERS Safety Report 18440660 (Version 1)
Quarter: 2020Q4

REPORT INFORMATION
  Report Type: Spontaneous
  Country: PT (occurrence: PT)
  Receive Date: 20201029
  Receipt Date: 20201029
  Transmission Date: 20210114
  Serious: Yes (Hospitalization)
  Sender: FDA-Public Use
  Company Number: PT-PFIZER INC-2020419093

PATIENT
  Age: 45 Year
  Sex: Female

DRUGS (4)
  1. BRAFTOVI [Suspect]
     Active Substance: ENCORAFENIB
     Indication: OVARIAN MASS
     Dosage: 225 MG, QD (1/DAY)
     Route: 048
  2. CETUXIMAB. [Suspect]
     Active Substance: CETUXIMAB
     Indication: COLORECTAL CANCER METASTATIC
     Dosage: 400 MG/M2, WEEKLY
     Route: 065
     Dates: start: 20200831
  3. BRAFTOVI [Suspect]
     Active Substance: ENCORAFENIB
     Indication: COLORECTAL CANCER METASTATIC
     Dosage: 300 MG, QD (1/DAY)
     Route: 048
     Dates: start: 20200831
  4. CETUXIMAB. [Suspect]
     Active Substance: CETUXIMAB
     Indication: OVARIAN MASS
     Dosage: 250 MG/M2, WEEKLY
     Route: 065

REACTIONS (3)
  - Vomiting [Recovering/Resolving]
  - Headache [Unknown]
  - Acute kidney injury [Unknown]

NARRATIVE: CASE EVENT DATE: 202010
